FAERS Safety Report 9769057 (Version 1)
Quarter: 2013Q4

REPORT INFORMATION
  Report Type: Spontaneous
  Country: US (occurrence: None)
  Receive Date: 20131217
  Receipt Date: 20131217
  Transmission Date: 20140711
  Serious: Yes (Disabling, Other)
  Sender: FDA-Public Use
  Company Number: None

PATIENT
  Age: 46 Year
  Sex: Female
  Weight: 45.36 kg

DRUGS (1)
  1. TOPIRAMATE [Suspect]
     Indication: MIGRAINE
     Dosage: 2 PILLS MORN/3PILLS NIGHT
     Route: 048
     Dates: start: 20131021, end: 20131125

REACTIONS (3)
  - Migraine [None]
  - Weight increased [None]
  - Product substitution issue [None]
